FAERS Safety Report 20002368 (Version 9)
Quarter: 2022Q2

REPORT INFORMATION
  Report Type: Spontaneous
  Country: US (occurrence: US)
  Receive Date: 20211027
  Receipt Date: 20220630
  Transmission Date: 20220721
  Serious: No
  Sender: FDA-Public Use
  Company Number: US-PFIZER INC-2021665252

PATIENT
  Age: 78 Year
  Sex: Female

DRUGS (3)
  1. EUCRISA [Suspect]
     Active Substance: CRISABOROLE
     Indication: Eczema
     Dosage: APPLY A SMALL AMOUNT TO AFFECTED AREA TWICE DAILY
     Route: 061
  2. EUCRISA [Suspect]
     Active Substance: CRISABOROLE
     Indication: Pruritus
     Dosage: 100 MG, 2X/DAY
     Route: 061
  3. EUCRISA [Suspect]
     Active Substance: CRISABOROLE
     Dosage: APPLY 0.5 -1 GRAM TO AFFECTED AREA TWICE A DAY AS NEEDED
     Route: 061

REACTIONS (3)
  - Condition aggravated [Unknown]
  - Therapeutic response unexpected [Recovering/Resolving]
  - Off label use [Unknown]
